FAERS Safety Report 9970597 (Version 1)
Quarter: 2014Q1

REPORT INFORMATION
  Report Type: Spontaneous
  Country: US (occurrence: None)
  Receive Date: 20140305
  Receipt Date: 20140305
  Transmission Date: 20141002
  Serious: Yes (Hospitalization, Disabling)
  Sender: FDA-Public Use
  Company Number: None

PATIENT
  Age: 28 Year
  Sex: Female
  Weight: 72.58 kg

DRUGS (9)
  1. PHENERGAN [Suspect]
     Indication: SLEEP DISORDER
     Dosage: TO HELP ME SLEEP
  2. LAMICTAL [Concomitant]
  3. CELEBREX [Concomitant]
  4. SYNTHROID [Concomitant]
  5. GEODON [Concomitant]
  6. ALDACTONE [Concomitant]
  7. CYMBALTA [Concomitant]
  8. TYLENOL [Concomitant]
  9. ADVIL [Concomitant]

REACTIONS (1)
  - Complex partial seizures [None]
